FAERS Safety Report 5805796-X (Version None)
Quarter: 2008Q3

REPORT INFORMATION
  Report Type: 
  Country: None (occurrence: None)
  Receive Date: 20080710
  Receipt Date: 20080630
  Transmission Date: 20090109
  Serious: Yes (Other)
  Sender: FDA-Public Use
  Company Number: PHHO2007MX05099

PATIENT
  Sex: Female

DRUGS (2)
  1. PARLODEL [Suspect]
     Dosage: 2.5 MG
     Route: 048
  2. PARLODEL [Suspect]
     Dosage: 5 MG

REACTIONS (2)
  - ABORTION SPONTANEOUS [None]
  - DRUG EXPOSURE DURING PREGNANCY [None]
